FAERS Safety Report 23837061 (Version 1)
Quarter: 2024Q2

REPORT INFORMATION
  Report Type: Spontaneous
  Country: US (occurrence: US)
  Receive Date: 20240509
  Receipt Date: 20240509
  Transmission Date: 20240715
  Serious: Yes (Hospitalization)
  Sender: FDA-Public Use
  Company Number: US-TEVA-VS-3196017

PATIENT
  Age: 21 Year
  Sex: Male

DRUGS (2)
  1. UZEDY [Suspect]
     Active Substance: RISPERIDONE
     Indication: Patient elopement
     Dosage: 100/0.28 MG/ML
     Route: 065
     Dates: start: 20240308
  2. UZEDY [Suspect]
     Active Substance: RISPERIDONE
     Indication: Incoherent

REACTIONS (4)
  - Patient elopement [Unknown]
  - Insurance issue [Unknown]
  - Incoherent [Unknown]
  - Off label use [Unknown]

NARRATIVE: CASE EVENT DATE: 20240101
